FAERS Safety Report 17006820 (Version 4)
Quarter: 2020Q1

REPORT INFORMATION
  Report Type: Spontaneous
  Country: JP (occurrence: JP)
  Receive Date: 20191107
  Receipt Date: 20200225
  Transmission Date: 20200409
  Serious: Yes (Death)
  Sender: FDA-Public Use
  Company Number: JP-JNJFOC-20191102884

PATIENT
  Age: 55 Year
  Sex: Male
  Weight: 98.2 kg

DRUGS (16)
  1. XEPLION [Suspect]
     Active Substance: PALIPERIDONE PALMITATE
     Indication: SCHIZOPHRENIA
     Dosage: DELTOID MUSCLE
     Route: 030
     Dates: start: 20180322, end: 20180322
  2. XEPLION [Suspect]
     Active Substance: PALIPERIDONE PALMITATE
     Dosage: MIDDLE GLUTEAL MUSCLE, LEFT AND RIGHT ALTERNATING ADMINISTRATION
     Route: 030
     Dates: start: 20180426, end: 20180426
  3. XEPLION [Suspect]
     Active Substance: PALIPERIDONE PALMITATE
     Dosage: MIDDLE GLUTEAL MUSCLE, LEFT AND RIGHT ALTERNATING ADMINISTRATION
     Route: 030
     Dates: start: 20180816, end: 20180816
  4. XEPLION [Suspect]
     Active Substance: PALIPERIDONE PALMITATE
     Dosage: MIDDLE GLUTEAL MUSCLE, LEFT AND RIGHT ALTERNATING ADMINISTRATION
     Route: 030
     Dates: start: 20181108, end: 20181108
  5. XEPLION [Suspect]
     Active Substance: PALIPERIDONE PALMITATE
     Dosage: MIDDLE GLUTEAL MUSCLE, LEFT AND RIGHT ALTERNATING ADMINISTRATION
     Route: 030
     Dates: start: 20181206, end: 20181206
  6. RISPERIDONE. [Suspect]
     Active Substance: RISPERIDONE
     Indication: SCHIZOPHRENIA
     Dosage: 2MGX1 IN THE MORNING, 2MGX2 IN THE EVENING
     Route: 048
  7. FLUNITRAZEPAM [Suspect]
     Active Substance: FLUNITRAZEPAM
     Indication: PRODUCT USED FOR UNKNOWN INDICATION
     Route: 065
  8. XEPLION [Suspect]
     Active Substance: PALIPERIDONE PALMITATE
     Dosage: MIDDLE GLUTEAL MUSCLE, LEFT AND RIGHT ALTERNATING ADMINISTRATION
     Route: 030
     Dates: start: 20180524, end: 20180524
  9. XEPLION [Suspect]
     Active Substance: PALIPERIDONE PALMITATE
     Dosage: MIDDLE GLUTEAL MUSCLE, LEFT AND RIGHT ALTERNATING ADMINISTRATION
     Route: 030
     Dates: start: 20180621, end: 20180621
  10. XEPLION [Suspect]
     Active Substance: PALIPERIDONE PALMITATE
     Dosage: MIDDLE GLUTEAL MUSCLE, LEFT AND RIGHT ALTERNATING ADMINISTRATION
     Route: 030
     Dates: start: 20181227, end: 20181227
  11. XEPLION [Suspect]
     Active Substance: PALIPERIDONE PALMITATE
     Dosage: MIDDLE GLUTEAL MUSCLE, LEFT AND RIGHT ALTERNATING ADMINISTRATION
     Route: 030
     Dates: start: 20181011, end: 20181011
  12. XEPLION [Suspect]
     Active Substance: PALIPERIDONE PALMITATE
     Dosage: MIDDLE GLUTEAL MUSCLE, LEFT AND RIGHT ALTERNATING ADMINISTRATION
     Route: 030
     Dates: start: 20190124, end: 20191003
  13. BIPERIDEN HYDROCHLORIDE [Suspect]
     Active Substance: BIPERIDEN HYDROCHLORIDE
     Indication: PRODUCT USED FOR UNKNOWN INDICATION
     Route: 065
  14. XEPLION [Suspect]
     Active Substance: PALIPERIDONE PALMITATE
     Dosage: DELTOID MUSCLE
     Route: 030
     Dates: start: 20180329, end: 20180329
  15. XEPLION [Suspect]
     Active Substance: PALIPERIDONE PALMITATE
     Dosage: MIDDLE GLUTEAL MUSCLE, LEFT AND RIGHT ALTERNATING ADMINISTRATION
     Route: 030
     Dates: start: 20180913, end: 20180913
  16. XEPLION [Suspect]
     Active Substance: PALIPERIDONE PALMITATE
     Dosage: MIDDLE GLUTEAL MUSCLE, LEFT AND RIGHT ALTERNATING ADMINISTRATION
     Route: 030
     Dates: start: 20180717, end: 20180717

REACTIONS (2)
  - Cardiac failure acute [Fatal]
  - Obesity [Unknown]

NARRATIVE: CASE EVENT DATE: 20191016
